FAERS Safety Report 8601205-6 (Version None)
Quarter: 2012Q3

REPORT INFORMATION
  Report Type: 
  Country: None (occurrence: None)
  Receive Date: 20120805
  Receipt Date: 20120725
  Transmission Date: 20120928
  Serious: Yes (Death, Hospitalization, Other)
  Sender: FDA-Public Use
  Company Number: 2012MA009138

PATIENT
  Age: 27 Year
  Sex: Male

DRUGS (10)
  1. AMLODIPINE [Suspect]
     Indication: MULTIPLE DRUG OVERDOSE INTENTIONAL
     Dosage: PO
     Route: 048
  2. AMLODIPINE [Suspect]
     Indication: COMPLETED SUICIDE
     Dosage: PO
     Route: 048
  3. ALPRAZOLAM [Suspect]
     Indication: MULTIPLE DRUG OVERDOSE INTENTIONAL
     Dosage: PO
     Route: 048
  4. ALPRAZOLAM [Suspect]
     Indication: COMPLETED SUICIDE
     Dosage: PO
     Route: 048
  5. ATENOLOL [Suspect]
     Indication: MULTIPLE DRUG OVERDOSE INTENTIONAL
     Dosage: PO
     Route: 048
  6. ATENOLOL [Suspect]
     Indication: COMPLETED SUICIDE
     Dosage: PO
     Route: 048
  7. KADIAN [Suspect]
     Indication: COMPLETED SUICIDE
  8. KADIAN [Suspect]
     Indication: MULTIPLE DRUG OVERDOSE INTENTIONAL
  9. ACETAMINOPHEN AND HYDROCODONE BITARTRATE [Suspect]
     Indication: MULTIPLE DRUG OVERDOSE INTENTIONAL
  10. ACETAMINOPHEN AND HYDROCODONE BITARTRATE [Suspect]
     Indication: COMPLETED SUICIDE

REACTIONS (15)
  - CARDIAC ARREST [None]
  - HEART RATE INCREASED [None]
  - ALANINE AMINOTRANSFERASE INCREASED [None]
  - HYPOKALAEMIA [None]
  - TOXICITY TO VARIOUS AGENTS [None]
  - ASPARTATE AMINOTRANSFERASE INCREASED [None]
  - HYPERKALAEMIA [None]
  - HAEMATEMESIS [None]
  - BUNDLE BRANCH BLOCK RIGHT [None]
  - HYPOTENSION [None]
  - HAEMODIALYSIS [None]
  - BODY TEMPERATURE DECREASED [None]
  - DRUG SCREEN POSITIVE [None]
  - UNRESPONSIVE TO STIMULI [None]
  - HYPOGLYCAEMIA [None]
